FAERS Safety Report 15428566 (Version 2)
Quarter: 2018Q4

REPORT INFORMATION
  Report Type: Spontaneous
  Country: JP (occurrence: JP)
  Receive Date: 20180926
  Receipt Date: 20181205
  Transmission Date: 20190204
  Serious: Yes (Other)
  Sender: FDA-Public Use
  Company Number: JP-ELI_LILLY_AND_COMPANY-JP201809011232

PATIENT
  Age: 89 Year
  Sex: Female
  Weight: 38 kg

DRUGS (6)
  1. ELCITONIN [Concomitant]
     Active Substance: ELCATONIN
     Route: 030
  2. FORTEO [Suspect]
     Active Substance: TERIPARATIDE
     Indication: PRODUCT USED FOR UNKNOWN INDICATION
     Dosage: UNK
     Route: 058
     Dates: start: 20150404, end: 20171219
  3. DIART [Concomitant]
     Active Substance: AZOSEMIDE
     Route: 048
  4. ARTZ DISPO [Concomitant]
     Route: 014
  5. XYLOCAINE #1 [Concomitant]
     Active Substance: LIDOCAINE
     Route: 014
  6. ZEPOLAS [Concomitant]
     Route: 003

REACTIONS (1)
  - Osteonecrosis [Not Recovered/Not Resolved]

NARRATIVE: CASE EVENT DATE: 20180119
